FAERS Safety Report 4638339-7 (Version None)
Quarter: 2005Q2

REPORT INFORMATION
  Report Type: 
  Country: None (occurrence: None)
  Receive Date: 20050418
  Receipt Date: 20041229
  Transmission Date: 20051028
  Serious: Yes (Hospitalization, Disabling)
  Sender: FDA-Public Use
  Company Number: ES-MERCK-0412ESP00045

PATIENT
  Age: 46 Year
  Sex: Female
  Weight: 53 kg

DRUGS (4)
  1. VIOXX [Suspect]
     Indication: PAIN
     Route: 048
     Dates: start: 20000701, end: 20000901
  2. VIOXX [Suspect]
     Indication: ROAD TRAFFIC ACCIDENT
     Route: 048
     Dates: start: 20000701, end: 20000901
  3. FLUOXETINE HYDROCHLORIDE [Concomitant]
     Route: 065
  4. FLURAZEPAM HYDROCHLORIDE [Concomitant]
     Route: 065

REACTIONS (10)
  - BLOOD IRON DECREASED [None]
  - FAECAL INCONTINENCE [None]
  - FLUID RETENTION [None]
  - GENERALISED OEDEMA [None]
  - INTERVERTEBRAL DISC DISORDER [None]
  - INTESTINAL POLYP [None]
  - OEDEMA PERIPHERAL [None]
  - RECTAL TENESMUS [None]
  - RENAL DISORDER [None]
  - WEIGHT INCREASED [None]
